FAERS Safety Report 7899375-0 (Version None)
Quarter: 2011Q4

REPORT INFORMATION
  Report Type: 
  Country: None (occurrence: None)
  Receive Date: 20111107
  Receipt Date: 20110913
  Transmission Date: 20120403
  Serious: No
  Sender: FDA-Public Use
  Company Number: US-AMGEN-USASP2011047015

PATIENT
  Age: 48 Year
  Sex: Female

DRUGS (2)
  1. ENBREL [Suspect]
     Indication: RHEUMATOID ARTHRITIS
     Dosage: 50 MG, QWK
     Dates: start: 20110821
  2. TREXALL [Concomitant]
     Dosage: 8 MG, QWK
     Dates: start: 20100401

REACTIONS (4)
  - ERYTHEMA [None]
  - SKIN IRRITATION [None]
  - CONTUSION [None]
  - PRURITUS [None]
